FAERS Safety Report 16064740 (Version 1)
Quarter: 2019Q1

REPORT INFORMATION
  Report Type: Spontaneous
  Country: ES (occurrence: ES)
  Receive Date: 20190312
  Receipt Date: 20190312
  Transmission Date: 20190418
  Serious: Yes (Other)
  Sender: FDA-Public Use
  Company Number: ES-EX USA HOLDINGS-EXHL20192165

PATIENT
  Sex: Female

DRUGS (3)
  1. BENZNIDAZOLE. [Suspect]
     Active Substance: BENZNIDAZOLE
     Indication: SKIN TEST
     Dosage: 10% IN DIMETHYLSULFOXIDE
     Route: 061
  2. METRONIDAZOLE. [Suspect]
     Active Substance: METRONIDAZOLE
     Indication: SKIN TEST
     Dosage: 10% IN DIMETHYLSULFOXIDE
     Route: 061
  3. BENZNIDAZOLE. [Suspect]
     Active Substance: BENZNIDAZOLE
     Indication: AMERICAN TRYPANOSOMIASIS
     Dosage: UNKNOWN
     Route: 065

REACTIONS (5)
  - Type IV hypersensitivity reaction [None]
  - Rash maculo-papular [Recovered/Resolved]
  - Product use issue [None]
  - Rash pruritic [Recovered/Resolved]
  - Therapeutic product cross-reactivity [None]
